FAERS Safety Report 21271052 (Version 1)
Quarter: 2022Q3

REPORT INFORMATION
  Report Type: Spontaneous
  Country: MX (occurrence: MX)
  Receive Date: 20220830
  Receipt Date: 20220830
  Transmission Date: 20221026
  Serious: Yes (Death, Hospitalization, Other)
  Sender: FDA-Public Use
  Company Number: MX-BAXTER-2022BAX018418

PATIENT
  Age: 59 Year
  Sex: Female

DRUGS (1)
  1. DIANEAL [Suspect]
     Active Substance: CALCIUM CHLORIDE\DEXTROSE\MAGNESIUM CHLORIDE\SODIUM CHLORIDE\SODIUM LACTATE
     Indication: Peritoneal dialysis
     Dosage: UNK
     Route: 033
     Dates: start: 2012, end: 202107

REACTIONS (3)
  - Death [Fatal]
  - Peritoneal dialysis complication [Unknown]
  - Peritonitis [Unknown]

NARRATIVE: CASE EVENT DATE: 20210724
